FAERS Safety Report 14822977 (Version 1)
Quarter: 2018Q2

REPORT INFORMATION
  Report Type: Report from Study
  Country: BR (occurrence: BR)
  Receive Date: 20180427
  Receipt Date: 20180427
  Transmission Date: 20180711
  Serious: Yes (Other)
  Sender: FDA-Public Use
  Company Number: PHHY2017BR155273

PATIENT
  Sex: Female
  Weight: 58 kg

DRUGS (1)
  1. ACLASTA [Suspect]
     Active Substance: ZOLEDRONIC ACID
     Indication: OSTEOPOROSIS
     Route: 065

REACTIONS (16)
  - Spinal pain [Recovering/Resolving]
  - Pyrexia [Recovering/Resolving]
  - Balance disorder [Not Recovered/Not Resolved]
  - General physical health deterioration [Recovering/Resolving]
  - Back pain [Recovering/Resolving]
  - Feeling of despair [Not Recovered/Not Resolved]
  - Neovascular age-related macular degeneration [Not Recovered/Not Resolved]
  - Anxiety [Unknown]
  - Pain [Recovered/Resolved]
  - Diplopia [Not Recovered/Not Resolved]
  - Feeling abnormal [Not Recovered/Not Resolved]
  - Headache [Recovering/Resolving]
  - Drug intolerance [Unknown]
  - Incorrect drug administration duration [Unknown]
  - Malaise [Recovering/Resolving]
  - Visual impairment [Not Recovered/Not Resolved]
